FAERS Safety Report 25430920 (Version 1)
Quarter: 2025Q2

REPORT INFORMATION
  Report Type: Spontaneous
  Country: CA (occurrence: CA)
  Receive Date: 20250612
  Receipt Date: 20250612
  Transmission Date: 20250716
  Serious: Yes (Life-Threatening, Hospitalization, Disabling)
  Sender: ABBVIE
  Company Number: CA-ABBVIE-6324350

PATIENT
  Age: 45 Year
  Sex: Female
  Weight: 43 kg

DRUGS (10)
  1. RINVOQ [Suspect]
     Active Substance: UPADACITINIB
     Indication: Rheumatoid arthritis
     Route: 048
  2. CODEINE SULFATE [Concomitant]
     Active Substance: CODEINE SULFATE
     Indication: Product used for unknown indication
     Route: 065
  3. POLYETHYLENE GLYCOL 3350 [Concomitant]
     Active Substance: POLYETHYLENE GLYCOL 3350
     Indication: Product used for unknown indication
  4. DIENOGEST [Suspect]
     Active Substance: DIENOGEST
     Indication: Endometriosis
     Route: 048
  5. CELECOXIB [Concomitant]
     Active Substance: CELECOXIB
     Indication: Product used for unknown indication
  6. DICLOFENAC DIETHYLAMINE [Concomitant]
     Active Substance: DICLOFENAC DIETHYLAMINE
     Indication: Product used for unknown indication
     Route: 065
  7. FOLIC ACID [Concomitant]
     Active Substance: FOLIC ACID
     Indication: Product used for unknown indication
  8. BISOPROLOL [Concomitant]
     Active Substance: BISOPROLOL
     Indication: Product used for unknown indication
     Route: 065
  9. VITAMIN D [Concomitant]
     Active Substance: VITAMIN D NOS
     Indication: Product used for unknown indication
  10. HYDROCORTISONE [Concomitant]
     Active Substance: HYDROCORTISONE
     Indication: Product used for unknown indication

REACTIONS (11)
  - Septic shock [Recovering/Resolving]
  - Transfusion [Recovering/Resolving]
  - Intra-abdominal fluid collection [Recovering/Resolving]
  - Peripheral vein thrombus extension [Recovering/Resolving]
  - Pelvic venous thrombosis [Recovering/Resolving]
  - Pulmonary embolism [Recovering/Resolving]
  - Emphysema [Recovering/Resolving]
  - Pneumonia [Recovering/Resolving]
  - Abscess [Recovering/Resolving]
  - Pleural effusion [Recovering/Resolving]
  - Sepsis [Recovering/Resolving]
